FAERS Safety Report 11064425 (Version 2)
Quarter: 2015Q3

REPORT INFORMATION
  Report Type: Spontaneous
  Country: FR (occurrence: FR)
  Receive Date: 20150424
  Receipt Date: 20150827
  Transmission Date: 20151125
  Serious: Yes (Hospitalization, Other)
  Sender: FDA-Public Use
  Company Number: FR-GLAXOSMITHKLINE-FR2015GSK055969

PATIENT
  Age: 54 Year
  Sex: Male

DRUGS (12)
  1. ALKERAN [Suspect]
     Active Substance: MELPHALAN
     Indication: B-CELL LYMPHOMA
     Dosage: 284 MG, UNK
     Route: 065
     Dates: start: 20100928, end: 20100928
  2. ETOPOSIDE. [Suspect]
     Active Substance: ETOPOSIDE
  3. DOXORUBICIN [Suspect]
     Active Substance: DOXORUBICIN
     Dosage: UNK
     Route: 041
     Dates: start: 20040205, end: 200407
  4. ENDOXAN [Suspect]
     Active Substance: CYCLOPHOSPHAMIDE
     Indication: B-CELL LYMPHOMA
     Dosage: UNK
     Route: 041
     Dates: start: 20040205
  5. FLUDARABINE [Suspect]
     Active Substance: FLUDARABINE PHOSPHATE
  6. MABTHERA [Concomitant]
     Active Substance: RITUXIMAB
     Dosage: UNK
     Dates: start: 20110120, end: 20120920
  7. INTERFERON [Concomitant]
     Active Substance: INTERFERON
  8. CYTARABINE. [Concomitant]
     Active Substance: CYTARABINE
     Dosage: UNK, 1D
  9. ETOPOPHOS [Suspect]
     Active Substance: ETOPOSIDE PHOSPHATE
  10. ZEVALIN [Suspect]
     Active Substance: IBRITUMOMAB TIUXETAN
  11. BICNU [Suspect]
     Active Substance: CARMUSTINE
  12. MABTHERA [Concomitant]
     Active Substance: RITUXIMAB
     Dosage: UNK, WE
     Dates: start: 201003, end: 20100707

REACTIONS (1)
  - 5q minus syndrome [Unknown]

NARRATIVE: CASE EVENT DATE: 201412
